FAERS Safety Report 6209860-5 (Version None)
Quarter: 2009Q2

REPORT INFORMATION
  Report Type: 
  Country: None (occurrence: None)
  Receive Date: 20090601
  Receipt Date: 20090525
  Transmission Date: 20091009
  Serious: Yes (Other)
  Sender: FDA-Public Use
  Company Number: IE-ASTRAZENECA-2009GB01208

PATIENT
  Sex: Female

DRUGS (3)
  1. SEROQUEL [Suspect]
     Route: 048
  2. EFFEXOR [Concomitant]
  3. TREATMENT FOR CANCER [Concomitant]
     Indication: NEOPLASM MALIGNANT

REACTIONS (1)
  - WHITE BLOOD CELL COUNT DECREASED [None]
